FAERS Safety Report 12345882 (Version 2)
Quarter: 2017Q2

REPORT INFORMATION
  Report Type: Spontaneous
  Country: US (occurrence: US)
  Receive Date: 20160509
  Receipt Date: 20170509
  Transmission Date: 20170830
  Serious: Yes (Other)
  Sender: FDA-Public Use
  Company Number: US-DRREDDYS-USA/USA/15/0053723

PATIENT
  Sex: Female

DRUGS (1)
  1. DIVALPROEX SODIUM EXTENDED RELEASE TABLETS 500 MG [Suspect]
     Active Substance: DIVALPROEX SODIUM
     Indication: PRODUCT USED FOR UNKNOWN INDICATION
     Route: 065

REACTIONS (7)
  - Tachyphrenia [Unknown]
  - Disturbance in social behaviour [Unknown]
  - Product quality issue [Unknown]
  - Suicidal ideation [Unknown]
  - Insomnia [Unknown]
  - Depression [Unknown]
  - Condition aggravated [Unknown]
